FAERS Safety Report 9500782 (Version 1)
Quarter: 2013Q3

REPORT INFORMATION
  Report Type: Report from Study
  Country: CA (occurrence: CA)
  Receive Date: 20130905
  Receipt Date: 20130905
  Transmission Date: 20140515
  Serious: Yes (Hospitalization)
  Sender: FDA-Public Use
  Company Number: CA-ABBOTT-13P-028-1141905-00

PATIENT
  Age: 73 Year
  Sex: Male

DRUGS (1)
  1. HUMIRA [Suspect]
     Indication: PSORIATIC ARTHROPATHY
     Route: 058
     Dates: start: 20130725

REACTIONS (4)
  - Muscular weakness [Recovering/Resolving]
  - Hypoaesthesia oral [Recovering/Resolving]
  - Cerebrovascular accident [Recovering/Resolving]
  - Injection site pain [Recovered/Resolved]
